FAERS Safety Report 14845803 (Version 3)
Quarter: 2018Q4

REPORT INFORMATION
  Report Type: Spontaneous
  Country: US (occurrence: US)
  Receive Date: 20180504
  Receipt Date: 20181130
  Transmission Date: 20190204
  Serious: No
  Sender: FDA-Public Use
  Company Number: US-PHARMACEUTICS INTERNATIONAL, INC. (PII)-2018PII000019

PATIENT
  Age: 58 Year
  Sex: Female

DRUGS (3)
  1. HYDROCORTISONE USP [Suspect]
     Active Substance: HYDROCORTISONE
     Dosage: 2.5 MG, UNK
     Route: 048
  2. HYDROCORTISONE USP [Suspect]
     Active Substance: HYDROCORTISONE
     Indication: ADRENAL INSUFFICIENCY
     Dosage: 10 MG AT 5:15 AM, 5 MG AT 11:15 AM, AND 3.75 MG (ROUGHLY 3/4 OF A PILL) AT 2:30 PM
     Route: 048
     Dates: start: 201802, end: 2018
  3. L-THYROXINE                        /00068001/ [Concomitant]
     Active Substance: LEVOTHYROXINE
     Indication: AUTOIMMUNE THYROIDITIS
     Dosage: UNK
     Route: 065

REACTIONS (5)
  - Tremor [Recovered/Resolved]
  - Feeling abnormal [Recovered/Resolved]
  - Product substitution issue [Unknown]
  - Wrong technique in product usage process [Unknown]
  - Stress [Recovered/Resolved]
